FAERS Safety Report 17350793 (Version 1)
Quarter: 2020Q1

REPORT INFORMATION
  Report Type: Spontaneous
  Country: DE (occurrence: DE)
  Receive Date: 20200130
  Receipt Date: 20200130
  Transmission Date: 20200409
  Serious: Yes (Hospitalization)
  Sender: FDA-Public Use
  Company Number: DE-009507513-2001DEU009710

PATIENT
  Sex: Female

DRUGS (1)
  1. NUVARING [Suspect]
     Active Substance: ETHINYL ESTRADIOL\ETONOGESTREL
     Dosage: 2 NUVARINGS IN A ROW WITHOUT A BREAK, THEN 3 DAYS OFF AND THEN 2 RINGS IN A ROW WITHOUT A BREAK
     Route: 067

REACTIONS (8)
  - Vestibular migraine [Unknown]
  - Influenza [Unknown]
  - Vestibular migraine [Unknown]
  - Metrorrhagia [Unknown]
  - Dizziness [Unknown]
  - Incorrect product administration duration [Unknown]
  - Inappropriate schedule of product administration [Unknown]
  - Dizziness [Unknown]

NARRATIVE: CASE EVENT DATE: 2019
